FAERS Safety Report 22802841 (Version 3)
Quarter: 2023Q4

REPORT INFORMATION
  Report Type: Report from Study
  Country: US (occurrence: US)
  Receive Date: 20230809
  Receipt Date: 20231108
  Transmission Date: 20240110
  Serious: Yes (Hospitalization)
  Sender: FDA-Public Use
  Company Number: US-JNJFOC-20230807655

PATIENT
  Age: 16 Year
  Sex: Male
  Weight: 77.18 kg

DRUGS (1)
  1. INFLIXIMAB [Suspect]
     Active Substance: INFLIXIMAB
     Indication: Inflammatory bowel disease
     Dosage: LAST ADMINISTRATION WAS REPORTED ON 03-JUN-2016
     Route: 041
     Dates: start: 20160528

REACTIONS (3)
  - Escherichia infection [Recovered/Resolved]
  - Enterococcal infection [Recovered/Resolved]
  - Bacterial infection [Recovered/Resolved]

NARRATIVE: CASE EVENT DATE: 20230307
